FAERS Safety Report 7937717-8 (Version None)
Quarter: 2011Q4

REPORT INFORMATION
  Report Type: 
  Country: None (occurrence: None)
  Receive Date: 20111123
  Receipt Date: 20111116
  Transmission Date: 20120403
  Serious: Yes (Hospitalization, Other)
  Sender: FDA-Public Use
  Company Number: PHHO2010AU14629

PATIENT
  Sex: Male
  Weight: 110 kg

DRUGS (5)
  1. VITAMIN B COMPLEX CAP [Concomitant]
  2. VALSARTAN [Suspect]
     Indication: HYPERTENSION
     Dosage: SCREENING PHASE
     Dates: start: 20100915, end: 20100915
  3. VALSARTAN [Suspect]
     Dosage: RUN IN PHASE
     Route: 048
     Dates: start: 20100915, end: 20100927
  4. OLIVE LEAVES EXTRACT [Concomitant]
  5. CIALIS [Concomitant]

REACTIONS (6)
  - DISORIENTATION [None]
  - ANGIOEDEMA [None]
  - SCROTAL SWELLING [None]
  - TRANSIENT ISCHAEMIC ATTACK [None]
  - VISION BLURRED [None]
  - PRURITUS [None]
